FAERS Safety Report 8594811-9 (Version None)
Quarter: 2012Q3

REPORT INFORMATION
  Report Type: 
  Country: None (occurrence: None)
  Receive Date: 20120815
  Receipt Date: 20120807
  Transmission Date: 20120928
  Serious: Yes (Hospitalization)
  Sender: FDA-Public Use
  Company Number: US-BAYER-2012-025594

PATIENT
  Age: 33 Year
  Sex: Female
  Weight: 58.957 kg

DRUGS (5)
  1. ADVIL [Concomitant]
     Dosage: UNK
     Dates: start: 20000101
  2. YAZ [Suspect]
     Indication: PREMENSTRUAL SYNDROME
     Dosage: UNK
     Dates: start: 20070101, end: 20090101
  3. YAZ [Suspect]
  4. LEXAPRO [Concomitant]
     Dosage: 5 MG, DAILY
     Route: 048
  5. MOTRIN [Concomitant]
     Dosage: UNK
     Dates: start: 20000101

REACTIONS (6)
  - INJURY [None]
  - CHOLECYSTITIS CHRONIC [None]
  - GENERAL PHYSICAL HEALTH DETERIORATION [None]
  - EMOTIONAL DISTRESS [None]
  - GALLBLADDER NON-FUNCTIONING [None]
  - PAIN [None]
